FAERS Safety Report 18117931 (Version 1)
Quarter: 2020Q3

REPORT INFORMATION
  Report Type: Spontaneous
  Country: US (occurrence: US)
  Receive Date: 20200806
  Receipt Date: 20200806
  Transmission Date: 20201103
  Serious: Yes (Hospitalization)
  Sender: FDA-Public Use
  Company Number: US-GYP-000180

PATIENT
  Age: 67 Year
  Weight: 86.1 kg

DRUGS (1)
  1. PREDNISONE. [Suspect]
     Active Substance: PREDNISONE
     Indication: MYASTHENIA GRAVIS
     Dosage: 60 MG BY MOUTH DAILY
     Route: 048

REACTIONS (3)
  - Product use in unapproved indication [Unknown]
  - Ocular myasthenia [Recovering/Resolving]
  - Condition aggravated [Recovering/Resolving]
